FAERS Safety Report 22283027 (Version 1)
Quarter: 2023Q2

REPORT INFORMATION
  Report Type: Spontaneous
  Country: DK (occurrence: None)
  Receive Date: 20230504
  Receipt Date: 20230504
  Transmission Date: 20230721
  Serious: Yes (Other)
  Sender: FDA-Public Use
  Company Number: 2023A096651

PATIENT
  Age: 68 Year
  Sex: Female
  Weight: 69 kg

DRUGS (1)
  1. LYNPARZA [Suspect]
     Active Substance: OLAPARIB
     Indication: Ovarian cancer
     Dosage: DOSAGE: DOSE REDUCED FROM 300MG TO 250MG 2 TIMES DAILY ON AN UNKNOWN DATE. STRENGTH: UNKNOWN
     Route: 048
     Dates: start: 20211222

REACTIONS (5)
  - Hypoaesthesia [Not Recovered/Not Resolved]
  - Peripheral swelling [Not Recovered/Not Resolved]
  - Neuropathy peripheral [Not Recovered/Not Resolved]
  - Pain in extremity [Not Recovered/Not Resolved]
  - White blood cell count abnormal [Unknown]

NARRATIVE: CASE EVENT DATE: 20211226
